FAERS Safety Report 20768261 (Version 1)
Quarter: 2022Q2

REPORT INFORMATION
  Report Type: Spontaneous
  Country: CA (occurrence: None)
  Receive Date: 20220429
  Receipt Date: 20220429
  Transmission Date: 20220721
  Serious: Yes (Death)
  Sender: FDA-Public Use
  Company Number: CA-ROCHE-3084819

PATIENT
  Age: 28 Year
  Sex: Female

DRUGS (6)
  1. RITUXIMAB [Suspect]
     Active Substance: RITUXIMAB
     Indication: Relapsing-remitting multiple sclerosis
     Route: 065
  2. TYLENOL [Concomitant]
     Active Substance: ACETAMINOPHEN
     Indication: Migraine
     Route: 065
  3. METHYLPREDNISOLONE [Concomitant]
     Active Substance: METHYLPREDNISOLONE
     Indication: Product used for unknown indication
     Route: 042
  4. ESCITALOPRAM [Concomitant]
     Active Substance: ESCITALOPRAM OXALATE
     Indication: Product used for unknown indication
     Route: 065
  5. ACETAMINOPHEN [Concomitant]
     Active Substance: ACETAMINOPHEN
     Indication: Product used for unknown indication
     Route: 048
  6. GABAPENTIN [Concomitant]
     Active Substance: GABAPENTIN
     Indication: Product used for unknown indication
     Route: 065

REACTIONS (14)
  - Abdominal pain [Fatal]
  - Administration site pain [Fatal]
  - Chest discomfort [Fatal]
  - Chest pain [Fatal]
  - Death [Fatal]
  - Dizziness [Fatal]
  - Dyspnoea [Fatal]
  - Fatigue [Fatal]
  - Hypersensitivity [Fatal]
  - Nausea [Fatal]
  - Off label use [Fatal]
  - Oral pruritus [Fatal]
  - Somnolence [Fatal]
  - Throat irritation [Fatal]
